FAERS Safety Report 6535828-5 (Version None)
Quarter: 2010Q1

REPORT INFORMATION
  Report Type: 
  Country: None (occurrence: None)
  Receive Date: 20100113
  Receipt Date: 20091231
  Transmission Date: 20100710
  Serious: Yes (Other)
  Sender: FDA-Public Use
  Company Number: US-PFIZER INC-2010002227

PATIENT
  Sex: Female
  Weight: 92.517 kg

DRUGS (6)
  1. XANAX [Suspect]
     Indication: PANIC ATTACK
     Dosage: 1 MG, 2X/DAY
     Route: 048
  2. LIPITOR [Concomitant]
     Dosage: UNK
  3. PROZAC [Concomitant]
     Dosage: UNK
  4. ZETIA [Concomitant]
     Dosage: UNK
  5. VITAMINS [Concomitant]
     Dosage: UNK
  6. FISH OIL [Concomitant]
     Dosage: UNK

REACTIONS (12)
  - ANXIETY [None]
  - ARTHROPATHY [None]
  - DIABETES MELLITUS [None]
  - DRUG DOSE OMISSION [None]
  - FEAR [None]
  - HALLUCINATION [None]
  - HYPERTENSION [None]
  - NIGHTMARE [None]
  - SLEEP DISORDER [None]
  - STRESS [None]
  - THINKING ABNORMAL [None]
  - UTERINE DISORDER [None]
